FAERS Safety Report 23738152 (Version 4)
Quarter: 2024Q4

REPORT INFORMATION
  Report Type: Spontaneous
  Country: DE (occurrence: DE)
  Receive Date: 20240412
  Receipt Date: 20241127
  Transmission Date: 20250115
  Serious: Yes (Life-Threatening, Other)
  Sender: MYLAN
  Company Number: None

PATIENT
  Sex: Female

DRUGS (10)
  1. OLANZAPINE [Suspect]
     Active Substance: OLANZAPINE
     Indication: Restlessness
     Dosage: UNK UNK, BID, 1-0-1
     Route: 065
     Dates: start: 2023
  2. HALOPERIDOL [Suspect]
     Active Substance: HALOPERIDOL
     Indication: Ill-defined disorder
     Dosage: 10 MILLILITER, 10ML - 10ML - 10ML I.M./PO
     Route: 048
     Dates: start: 1987
  3. HALOPERIDOL [Suspect]
     Active Substance: HALOPERIDOL
     Dosage: UNK
     Route: 065
     Dates: start: 2019
  4. TAVOR (LORAZEPAM) [Suspect]
     Active Substance: LORAZEPAM
     Indication: Product used for unknown indication
     Dosage: UNK
     Route: 065
     Dates: start: 2019
  5. PERAZINE DIMALONATE [Suspect]
     Active Substance: PERAZINE DIMALONATE
     Indication: Schizophrenia
     Dosage: 25 MILLIGRAM, QD (1-0-1)
     Route: 048
     Dates: start: 1986
  6. PERAZINE DIMALONATE [Suspect]
     Active Substance: PERAZINE DIMALONATE
     Dosage: UNK, BID
     Route: 065
  7. AKINETON [Suspect]
     Active Substance: BIPERIDEN HYDROCHLORIDE
     Indication: Product used for unknown indication
     Dosage: UNK, ORAL AND ALSO AS AN INJECTION
     Route: 048
  8. AKINETON [Suspect]
     Active Substance: BIPERIDEN HYDROCHLORIDE
     Indication: Product used for unknown indication
     Dosage: UNK
     Route: 065
  9. PROMETHAZINE [Concomitant]
     Active Substance: PROMETHAZINE HYDROCHLORIDE
     Indication: Restlessness
     Dosage: 100 MILLIGRAM, QD, 0-1-1 (50 MG, BID)
     Route: 065
     Dates: start: 2023
  10. VALERIAN [Concomitant]
     Active Substance: VALERIAN
     Dosage: UNK
     Route: 065

REACTIONS (5)
  - Petit mal epilepsy [Not Recovered/Not Resolved]
  - Oculogyric crisis [Not Recovered/Not Resolved]
  - Epilepsy [Not Recovered/Not Resolved]
  - Vomiting [Not Recovered/Not Resolved]
  - Weight increased [Not Recovered/Not Resolved]
